FAERS Safety Report 9604319 (Version 1)
Quarter: 2013Q4

REPORT INFORMATION
  Report Type: Spontaneous
  Country: GB (occurrence: GB)
  Receive Date: 20131008
  Receipt Date: 20131008
  Transmission Date: 20140711
  Serious: Yes (Disabling)
  Sender: FDA-Public Use
  Company Number: GB-ELI_LILLY_AND_COMPANY-GB201309008458

PATIENT
  Age: 35 Year
  Sex: Male
  Weight: 72 kg

DRUGS (7)
  1. CYMBALTA [Suspect]
     Indication: ANXIETY
     Dosage: 30 MG, BID
     Route: 048
     Dates: start: 20120515
  2. CYMBALTA [Suspect]
     Dosage: 30 MG, QD
  3. CYMBALTA [Suspect]
     Dosage: 30 MG, QOD
  4. CYMBALTA [Suspect]
     Dosage: UNK, UNKNOWN
  5. NORTRIPTYLINE [Suspect]
     Indication: TENSION HEADACHE
     Dosage: 10 MG, QD
     Route: 048
     Dates: start: 20120515, end: 20120930
  6. ATORVASTATIN [Concomitant]
     Dosage: UNK, UNKNOWN
  7. GLICLAZIDE [Concomitant]
     Dosage: UNK, UNKNOWN

REACTIONS (2)
  - Tremor [Not Recovered/Not Resolved]
  - Withdrawal syndrome [Unknown]
